FAERS Safety Report 9551706 (Version 1)
Quarter: 2013Q3

REPORT INFORMATION
  Report Type: Spontaneous
  Country: US (occurrence: None)
  Receive Date: 20130724
  Receipt Date: 20130724
  Transmission Date: 20140515
  Serious: Yes (Disabling, Other)
  Sender: FDA-Public Use
  Company Number: PHEH2013US004175

PATIENT
  Age: 57 Year
  Sex: Female
  Weight: 90 kg

DRUGS (7)
  1. GLEEVEC (IMATINIB) UNKNOWN [Suspect]
     Indication: GASTRIC CANCER
     Route: 048
     Dates: start: 200905
  2. GLIMEPIRIDE (GLIMEPIRIDE) [Concomitant]
  3. PRAVASTATIN (PRAVASTATIN) [Concomitant]
  4. PREDNISONE (PREDNISONE) [Concomitant]
  5. JANUMET (METFORMIN HYDROCHLORIDE, SITAGLIPTIN PHOSPHATE MONOHYDRATE) [Concomitant]
  6. AMLODIPINE (AMLODIPINE) [Concomitant]
  7. ASPIRIN (ACETYLSALICYLIC ACID) [Concomitant]

REACTIONS (8)
  - Musculoskeletal stiffness [None]
  - Oedema peripheral [None]
  - Hypersensitivity [None]
  - Cystitis [None]
  - Arthritis [None]
  - Rash [None]
  - Vomiting [None]
  - Eye swelling [None]
